FAERS Safety Report 9258316 (Version 4)
Quarter: 2013Q4

REPORT INFORMATION
  Report Type: Spontaneous
  Country: US (occurrence: US)
  Receive Date: 20130426
  Receipt Date: 20131016
  Transmission Date: 20140711
  Serious: Yes (Hospitalization, Other)
  Sender: FDA-Public Use
  Company Number: US-009507513-1304USA014877

PATIENT
  Sex: Female
  Weight: 86.17 kg

DRUGS (8)
  1. FOSAMAX [Suspect]
     Indication: OSTEOPENIA
     Dosage: 10 MG, QD
     Route: 048
     Dates: start: 19960730, end: 20020506
  2. FOSAMAX [Suspect]
     Dosage: 70 MG, QW
     Route: 048
     Dates: start: 200205, end: 20050907
  3. FOSAMAX [Suspect]
     Dosage: 70 MG, QW
     Route: 048
     Dates: start: 20071126
  4. ALENDRONATE SODIUM [Suspect]
     Indication: OSTEOPENIA
     Dosage: 70 MG, UNK
     Route: 048
     Dates: start: 20081013, end: 20110520
  5. CENTRUM SILVER [Concomitant]
     Dosage: QD
     Dates: start: 1983
  6. CALTRATE (CALCIUM CARBONATE (+) CHOLECALCIFEROL) [Concomitant]
     Dosage: 1-2 QD
     Dates: start: 1983
  7. OS-CAL (CALCIUM CARBONATE) [Concomitant]
     Dosage: 1-2  DF, QD
     Dates: start: 1983
  8. CITRACAL [Concomitant]
     Dosage: 1-2 DF, QD

REACTIONS (39)
  - Intramedullary rod insertion [Unknown]
  - Pulmonary embolism [Unknown]
  - Transplant [Recovered/Resolved]
  - Deep vein thrombosis [Recovered/Resolved]
  - Pulmonary embolism [Unknown]
  - Aortic embolus [Unknown]
  - Electrocardiogram ST-T segment abnormal [Unknown]
  - Pneumonia [Unknown]
  - Femur fracture [Unknown]
  - Fracture nonunion [Recovering/Resolving]
  - Ankle fracture [Unknown]
  - Tooth extraction [Unknown]
  - Adverse event [Unknown]
  - Bronchitis [Unknown]
  - Bladder disorder [Unknown]
  - Arthritis [Unknown]
  - Psoriasis [Unknown]
  - Arthroscopic surgery [Unknown]
  - Medical device removal [Unknown]
  - Bacterial test positive [Unknown]
  - Low turnover osteopathy [Unknown]
  - Chronic obstructive pulmonary disease [Not Recovered/Not Resolved]
  - Biopsy breast [Unknown]
  - Osteoporosis [Not Recovered/Not Resolved]
  - Limb asymmetry [Unknown]
  - Tracheobronchomegaly [Unknown]
  - Culture positive [Unknown]
  - Pneumonia [Unknown]
  - Stress urinary incontinence [Unknown]
  - Blood potassium abnormal [Unknown]
  - Pulmonary hypertension [Unknown]
  - Haemangioma of bone [Unknown]
  - Tricuspid valve incompetence [Unknown]
  - Spondylolisthesis [Unknown]
  - Medical device change [Unknown]
  - Gait disturbance [Unknown]
  - Asthenia [Unknown]
  - Treatment failure [Unknown]
  - Oedema peripheral [Unknown]
